FAERS Safety Report 6078029-X (Version None)
Quarter: 2009Q1

REPORT INFORMATION
  Report Type: 
  Country: None (occurrence: None)
  Receive Date: 20090213
  Receipt Date: 20090204
  Transmission Date: 20090719
  Serious: Yes (Other)
  Sender: FDA-Public Use
  Company Number: CA-PFIZER INC-2009168689

PATIENT

DRUGS (1)
  1. ZELDOX [Suspect]
     Route: 048

REACTIONS (2)
  - DYSTONIA [None]
  - SUICIDE ATTEMPT [None]
